FAERS Safety Report 25575529 (Version 1)
Quarter: 2025Q3

REPORT INFORMATION
  Report Type: Spontaneous
  Country: TR (occurrence: TR)
  Receive Date: 20250718
  Receipt Date: 20250718
  Transmission Date: 20251021
  Serious: Yes (Death, Hospitalization, Other)
  Sender: Steriscience PTE
  Company Number: TR-STERISCIENCE B.V.-2025-ST-001328

PATIENT
  Age: 17 Year
  Sex: Male

DRUGS (3)
  1. MEROPENEM [Suspect]
     Active Substance: MEROPENEM
     Indication: Pseudomonal bacteraemia
     Route: 065
  2. FOSFOMYCIN [Suspect]
     Active Substance: FOSFOMYCIN
     Indication: Pseudomonal bacteraemia
     Route: 042
  3. COLISTIN [Suspect]
     Active Substance: COLISTIN
     Indication: Pseudomonal bacteraemia
     Route: 065

REACTIONS (1)
  - Drug ineffective [Fatal]
